FAERS Safety Report 4582975-3 (Version None)
Quarter: 2005Q1

REPORT INFORMATION
  Report Type: 
  Country: None (occurrence: None)
  Receive Date: 20050127
  Receipt Date: 20040920
  Transmission Date: 20050727
  Serious: No
  Sender: FDA-Public Use
  Company Number: USA040978745

PATIENT
  Age: 8 Year
  Sex: Male
  Weight: 30 kg

DRUGS (1)
  1. STRATTERA [Suspect]
     Indication: ATTENTION DEFICIT/HYPERACTIVITY DISORDER
     Dosage: 40 MG IN THE MORNING
     Dates: start: 20040818, end: 20040918

REACTIONS (7)
  - ANXIETY [None]
  - DRY MOUTH [None]
  - DYSPNOEA [None]
  - HEART RATE [None]
  - HOT FLUSH [None]
  - MOOD SWINGS [None]
  - STOMACH DISCOMFORT [None]
